FAERS Safety Report 16360027 (Version 7)
Quarter: 2023Q2

REPORT INFORMATION
  Report Type: Other
  Country: CA (occurrence: None)
  Receive Date: 20190528
  Receipt Date: 20230417
  Transmission Date: 20230722
  Serious: Yes (Other)
  Sender: FDA-Public Use
  Company Number: CA-ROCHE-2113838

PATIENT
  Age: 34 Year
  Sex: Female
  Weight: 136 kg

DRUGS (8)
  1. OCREVUS [Suspect]
     Active Substance: OCRELIZUMAB
     Indication: Relapsing-remitting multiple sclerosis
     Dosage: 300 MG AT DAY 0 AND 14, THEN 600 MG EVERY 6 MONTH
     Route: 042
     Dates: start: 20180423
  2. BENADRYL [Suspect]
     Active Substance: DIPHENHYDRAMINE HYDROCHLORIDE
     Indication: Product used for unknown indication
     Route: 065
     Dates: start: 20180507
  3. METHYLPREDNISOLONE [Concomitant]
     Active Substance: METHYLPREDNISOLONE
     Indication: Premedication
     Route: 042
     Dates: start: 20180423
  4. ACETAMINOPHEN [Concomitant]
     Active Substance: ACETAMINOPHEN
     Indication: Premedication
     Route: 048
     Dates: start: 20180423
  5. SAXENDA [Concomitant]
     Active Substance: LIRAGLUTIDE
     Indication: Weight decreased
  6. CETIRIZINE [Concomitant]
     Active Substance: CETIRIZINE HYDROCHLORIDE
     Route: 048
  7. METHYLPHENIDATE [Concomitant]
     Active Substance: METHYLPHENIDATE
     Dosage: PER DAY
  8. CITALOPRAM [Concomitant]
     Active Substance: CITALOPRAM HYDROBROMIDE
     Dosage: PER DAY

REACTIONS (7)
  - Anaphylactic reaction [Recovered/Resolved]
  - Infusion related reaction [Recovered/Resolved]
  - Drug hypersensitivity [Recovered/Resolved]
  - Illness [Recovered/Resolved]
  - Gastric infection [Recovered/Resolved]
  - Infection susceptibility increased [Unknown]
  - Decreased vibratory sense [Not Recovered/Not Resolved]

NARRATIVE: CASE EVENT DATE: 20180423
